FAERS Safety Report 15203014 (Version 1)
Quarter: 2018Q3

REPORT INFORMATION
  Report Type: Spontaneous
  Country: US (occurrence: US)
  Receive Date: 20180726
  Receipt Date: 20180726
  Transmission Date: 20181010
  Serious: Yes (Hospitalization, Other)
  Sender: FDA-Public Use
  Company Number: US-TAKEDA-2018TUS023053

PATIENT
  Age: 82 Year
  Sex: Male

DRUGS (3)
  1. NAMENDA [Concomitant]
     Active Substance: MEMANTINE HYDROCHLORIDE
     Dosage: UNK
     Route: 048
  2. TRINTELLIX [Suspect]
     Active Substance: VORTIOXETINE HYDROBROMIDE
     Indication: DEPRESSION
     Dosage: 10 MG, UNK
     Route: 048
  3. COREG [Concomitant]
     Active Substance: CARVEDILOL
     Dosage: UNK
     Route: 048

REACTIONS (1)
  - Cerebral infarction [Recovering/Resolving]
